FAERS Safety Report 8855854 (Version 1)
Quarter: 2012Q4

REPORT INFORMATION
  Report Type: 
  Country: US (occurrence: US)
  Receive Date: 20121023
  Receipt Date: 20121023
  Transmission Date: 20130627
  Serious: No
  Sender: FDA-Public Use
  Company Number: US-AMGEN-USASP2012058763

PATIENT
  Age: 61 Year
  Sex: Female

DRUGS (12)
  1. ENBREL [Suspect]
     Indication: PSORIATIC ARTHROPATHY
     Dosage: 25 mg, 2 times/wk
     Route: 058
  2. METHOTREXATE [Concomitant]
     Dosage: 2.5 mg, UNK
  3. SINGULAIR [Concomitant]
     Dosage: 10 mg, UNK
  4. LISINOPRIL [Concomitant]
     Dosage: 5 mg, UNK
  5. LEVBID [Concomitant]
  6. FOLIC ACID [Concomitant]
     Dosage: UNK
  7. LEUCOVORIN /00566701/ [Concomitant]
     Dosage: 5 mg, UNK
  8. JANUVIA [Concomitant]
     Dosage: 25 mg, UNK
  9. CETIRIZINE [Concomitant]
     Dosage: 5 mg, UNK
  10. LIPITOR [Concomitant]
     Dosage: 10 mg, UNK
  11. LEFLUNOMIDE [Concomitant]
     Dosage: 10 mg, UNK
  12. GLIMEPIRIDE [Concomitant]
     Dosage: 1 mg, UNK

REACTIONS (3)
  - Wrong technique in drug usage process [Unknown]
  - Upper respiratory tract infection [Unknown]
  - Influenza [Unknown]
